FAERS Safety Report 7931585-6 (Version None)
Quarter: 2011Q4

REPORT INFORMATION
  Report Type: 
  Country: None (occurrence: None)
  Receive Date: 20111121
  Receipt Date: 20111110
  Transmission Date: 20120403
  Serious: No
  Sender: FDA-Public Use
  Company Number: AT-ASTRAZENECA-2011SE56673

PATIENT
  Age: 27 Year
  Sex: Male
  Weight: 84 kg

DRUGS (9)
  1. SEROQUEL XR [Suspect]
     Route: 048
     Dates: start: 20110528, end: 20110606
  2. BUPROPION HCL [Concomitant]
     Indication: ANTIDEPRESSANT THERAPY
  3. SEROQUEL XR [Suspect]
     Route: 048
     Dates: start: 20110528, end: 20110606
  4. DULOXETIN [Concomitant]
     Indication: ANTIDEPRESSANT THERAPY
  5. ESCITALOPRAM [Concomitant]
     Indication: ANTIDEPRESSANT THERAPY
  6. SEROQUEL XR [Suspect]
     Indication: BIPOLAR I DISORDER
     Route: 048
     Dates: start: 20110503, end: 20110528
  7. SEROQUEL XR [Suspect]
     Indication: DEPRESSION
     Route: 048
     Dates: start: 20110503, end: 20110528
  8. LAMOTRIGINE [Concomitant]
  9. VENLAFAXINE [Concomitant]
     Indication: ANTIDEPRESSANT THERAPY

REACTIONS (2)
  - INTENTIONAL OVERDOSE [None]
  - FATIGUE [None]
